FAERS Safety Report 23829850 (Version 4)
Quarter: 2024Q2

REPORT INFORMATION
  Report Type: Spontaneous
  Country: US (occurrence: US)
  Receive Date: 20240508
  Receipt Date: 20240618
  Transmission Date: 20240717
  Serious: No
  Sender: FDA-Public Use
  Company Number: US-LUPIN PHARMACEUTICALS INC.-2024-03675

PATIENT

DRUGS (2)
  1. LISINOPRIL [Suspect]
     Active Substance: LISINOPRIL
     Indication: Hypertension
     Dosage: 2.5 MG, QD (ONE TABLET A DAY)
     Route: 048
     Dates: start: 20240415
  2. MELOXICAM [Concomitant]
     Active Substance: MELOXICAM
     Indication: Analgesic therapy
     Dosage: 7.5 MG
     Route: 065

REACTIONS (3)
  - Wrong product administered [Unknown]
  - Product commingling [Unknown]
  - No adverse event [Unknown]
